FAERS Safety Report 12837131 (Version 1)
Quarter: 2016Q4

REPORT INFORMATION
  Report Type: Spontaneous
  Country: DE (occurrence: DE)
  Receive Date: 20161011
  Receipt Date: 20161011
  Transmission Date: 20170207
  Serious: Yes (Other)
  Sender: FDA-Public Use
  Company Number: DE-ACORDA-ACO_129069_2016

PATIENT
  Age: 69 Year
  Sex: Male

DRUGS (1)
  1. QUTENZA [Suspect]
     Active Substance: CAPSAICIN
     Indication: PRODUCT USED FOR UNKNOWN INDICATION
     Dosage: UNK
     Route: 061
     Dates: start: 20160922, end: 20160922

REACTIONS (3)
  - Sleep disorder [Unknown]
  - Blood pressure fluctuation [Unknown]
  - Nausea [None]

NARRATIVE: CASE EVENT DATE: 20160922
